FAERS Safety Report 7103294-7 (Version None)
Quarter: 2010Q4

REPORT INFORMATION
  Report Type: 
  Country: None (occurrence: None)
  Receive Date: 20101115
  Receipt Date: 20101109
  Transmission Date: 20110411
  Serious: Yes (Hospitalization)
  Sender: FDA-Public Use
  Company Number: FR-BRISTOL-MYERS SQUIBB COMPANY-15377088

PATIENT
  Age: 49 Year
  Sex: Male

DRUGS (10)
  1. VIDEX [Suspect]
     Indication: HIV INFECTION
     Dates: end: 20100212
  2. VIREAD [Suspect]
     Indication: HIV INFECTION
     Dates: end: 20100212
  3. KALETRA [Suspect]
     Indication: HIV INFECTION
     Dates: end: 20100212
  4. CIFLOX [Concomitant]
     Dates: start: 20100201, end: 20100212
  5. PROGRAF [Concomitant]
     Dosage: UNK-12FEB2010, RESTARTED
     Route: 048
  6. GLUCOR [Concomitant]
     Route: 048
     Dates: end: 20100212
  7. IXPRIM [Concomitant]
     Route: 048
     Dates: end: 20100212
  8. IKOREL [Concomitant]
     Route: 048
     Dates: end: 20100212
  9. LEXOMIL [Concomitant]
     Dosage: FORM: TABLET
     Route: 048
     Dates: end: 20100212
  10. CETRIZINE [Concomitant]
     Route: 048
     Dates: end: 20100212

REACTIONS (1)
  - RENAL TUBULAR DISORDER [None]
